FAERS Safety Report 12756087 (Version 1)
Quarter: 2016Q3

REPORT INFORMATION
  Report Type: Report from Study
  Country: US (occurrence: US)
  Receive Date: 20160916
  Receipt Date: 20160916
  Transmission Date: 20161109
  Serious: Yes (Life-Threatening)
  Sender: FDA-Public Use
  Company Number: US-UCBSA-2016035334

PATIENT
  Age: 4 Year
  Sex: Female

DRUGS (3)
  1. LEVETIRACETAM. [Suspect]
     Active Substance: LEVETIRACETAM
     Indication: PRODUCT USED FOR UNKNOWN INDICATION
     Dosage: 3.5ML
  2. LEVETIRACETAM. [Suspect]
     Active Substance: LEVETIRACETAM
     Dosage: INCREASED DOSE
  3. DIASTAT [Concomitant]
     Active Substance: DIAZEPAM
     Indication: EPILEPSY
     Dosage: UNK

REACTIONS (4)
  - Seizure [Unknown]
  - Generalised tonic-clonic seizure [Unknown]
  - Dyspnoea [Unknown]
  - Petit mal epilepsy [Unknown]
